FAERS Safety Report 5449200-2 (Version None)
Quarter: 2007Q3

REPORT INFORMATION
  Report Type: 
  Country: None (occurrence: None)
  Receive Date: 20070911
  Receipt Date: 20070904
  Transmission Date: 20080115
  Serious: Yes (Life-Threatening)
  Sender: FDA-Public Use
  Company Number: NL-BOEHRINGER INGELHEIM PHARMACEUTICALS, INC.-2007-NL-00358NL

PATIENT
  Sex: Female
  Weight: 14 kg

DRUGS (14)
  1. CATAPRESAN INJECTIE [Suspect]
     Indication: HYPERTENSION
     Dosage: 0,150MG/ML AMPUL 1ML, 1 MICROGRAM/KG/U/ CONTINU IV
     Route: 042
     Dates: start: 20070820, end: 20070820
  2. ACYCLOVIR [Concomitant]
     Dosage: 25MG/ML FL 10 ML; DOSE NOT CHANGED; RVG:;HPK:N.B.
     Dates: start: 20070818
  3. CEFTRIAXON [Concomitant]
     Dosage: FLACON 2000MG; DOSE NOT CHANGED; RVG: ; HPK: N.B.
     Dates: start: 20070818
  4. LOSEC [Concomitant]
     Dosage: FLACON 40MG; DOSE NOT CHANGED; RVG: ; HPK: N.B.
     Dates: start: 20070818
  5. PREDNISOLON SODIUM SUCCINATE [Concomitant]
     Dosage: FLACON 25MG; DOSE NOT CHANGED; RVG: ; HPK: N.B.
     Dates: start: 20070818
  6. FURESOMIDE [Concomitant]
     Dosage: 10MG/ML AMPUL 2ML; DOSE NOT CHANGED; RVG: ; HPK: N.B.
     Dates: start: 20070820
  7. NEUPOGEN [Concomitant]
     Dosage: 30MILJ E/ML FLACON 1ML; DOSE NOT CHANGED; RVG: ; HPK: N.B.
     Dates: start: 20070820
  8. CYKLOKAPRON [Concomitant]
     Dosage: 100MG/ML AMPUL 5ML; DOSE NOT CHANGED; RVG: ; HPK: N.B.
     Dates: start: 20070820
  9. MORFINE [Concomitant]
     Dosage: 10MG/ML AMPUL 10ML; 20 MICROG/KG/U; DOSE NOT CHANGED; RVG: ; HPK: N.B.
     Dates: start: 20070820
  10. MIDAZOLAM HCL [Concomitant]
     Dosage: 1MG/ML AMPUL 5 ML; 0,11MG/KG/U; 1MG/ML AMPUL 5ML; DOSE NOT CHANGED; RVG: ; HPK: N.B.
     Dates: start: 20070820
  11. ESMERON [Concomitant]
     Dosage: 10MG/ML FLACON 5ML; 0,86 MG/KG/U; 10MG/ML FLACON 5ML; DOSE NOT CHANGED; RVG: ; HPK: N.B.
     Dates: start: 20070820
  12. KONAKION [Concomitant]
     Dosage: 10MG/ML AMPUL 0,2ML; DOSE NOT CHANGED; RVG: ; HPK: N.B.
     Dates: start: 20070818
  13. NYSTATINE [Concomitant]
     Dosage: 100.000 E/ML; 3DD 400000 E; DOSE NOT CHANGED; RVG: ; HPK: N.B.
     Dates: start: 20070818
  14. SIRUPUS LACTULOSI [Concomitant]
     Dosage: 500 MG/G; DOSE NOT CHANGED; RVG: ; HPK: N.B.
     Dates: start: 20070818

REACTIONS (2)
  - BRADYCARDIA [None]
  - HYPERTENSION [None]
